FAERS Safety Report 4842085-4 (Version None)
Quarter: 2005Q4

REPORT INFORMATION
  Report Type: 
  Country: None (occurrence: None)
  Receive Date: 20051130
  Receipt Date: 20051118
  Transmission Date: 20060501
  Serious: Yes (Other)
  Sender: FDA-Public Use
  Company Number: PHEH2005US12806

PATIENT
  Age: 82 Year
  Sex: Male

DRUGS (2)
  1. CARDIAC THERAPY [Concomitant]
  2. ZOMETA [Suspect]
     Dosage: 4 MG PER MONTH

REACTIONS (3)
  - DIZZINESS [None]
  - FALL [None]
  - LOSS OF CONSCIOUSNESS [None]
